FAERS Safety Report 9797514 (Version 1)
Quarter: 2014Q1

REPORT INFORMATION
  Report Type: Report from Study
  Country: MX (occurrence: MX)
  Receive Date: 20140106
  Receipt Date: 20140106
  Transmission Date: 20141002
  Serious: Yes (Disabling)
  Sender: FDA-Public Use
  Company Number: PHHY2013MX153026

PATIENT
  Age: 66 Year
  Sex: Male

DRUGS (7)
  1. STALEVO [Suspect]
     Indication: PARKINSON^S DISEASE
     Dosage: 200/50/200 MG, EVERY 4 HOURS
     Route: 048
     Dates: start: 20111214
  2. STALEVO [Suspect]
     Dosage: 125/31.25/200 MG
     Route: 048
  3. STALEVO [Suspect]
     Dosage: 200/50/200 MG, EVERY 4 HOURS
     Route: 048
  4. SIFROL [Concomitant]
     Dosage: 1 (UNIT UNSPECIFIED), DAILY
  5. MICARDIS [Concomitant]
     Indication: HYPERTENSION
     Dosage: 1 (UNIT UNSPECIFIED), DAILY
     Dates: start: 2008
  6. ASPIRINA [Concomitant]
     Indication: CEREBROVASCULAR DISORDER
     Dosage: 1 (UNIT UNSPECIFIED), DAILY
     Dates: start: 2008
  7. VENLAFAXINE [Concomitant]
     Indication: DEPRESSION
     Dosage: 1 (UNIT UNSPECIFIED), DAILY
     Dates: start: 2011

REACTIONS (3)
  - Speech disorder [Not Recovered/Not Resolved]
  - Nuchal rigidity [Not Recovered/Not Resolved]
  - Depressed mood [Not Recovered/Not Resolved]
